FAERS Safety Report 8203183 (Version 2)
Quarter: 2013Q1

REPORT INFORMATION
  Report Type: Report from Study
  Country: FR (occurrence: FR)
  Receive Date: 20111027
  Receipt Date: 20130326
  Transmission Date: 20140127
  Serious: Yes (Hospitalization)
  Sender: FDA-Public Use
  Company Number: PHHY2011FR93509

PATIENT
  Age: 64 Year
  Sex: Male
  Weight: 92 kg

DRUGS (7)
  1. AFINITOR [Suspect]
     Indication: RENAL CANCER METASTATIC
     Dosage: 2.5 MG, DAILY
  2. AFINITOR [Suspect]
     Dosage: 10 MG, QD
     Route: 048
     Dates: start: 201103
  3. ATACAND [Concomitant]
     Dosage: 1 DF, QD
     Route: 048
  4. LOXEN [Concomitant]
     Dosage: 2 DF, QD
     Route: 048
  5. ALLOPURINOL [Concomitant]
     Dosage: 1 DF, QD
     Route: 048
  6. SERETIDE [Concomitant]
     Dosage: 500 UG, UNK
  7. BRONCHODUAL [Concomitant]

REACTIONS (5)
  - Lung disorder [Recovered/Resolved]
  - Chronic obstructive pulmonary disease [Recovered/Resolved]
  - Palmar-plantar erythrodysaesthesia syndrome [Unknown]
  - Diarrhoea [Unknown]
  - Thrombocytopenia [Unknown]
